FAERS Safety Report 25647854 (Version 2)
Quarter: 2025Q3

REPORT INFORMATION
  Report Type: Spontaneous
  Country: JP (occurrence: JP)
  Receive Date: 20250806
  Receipt Date: 20250915
  Transmission Date: 20251020
  Serious: Yes (Death, Other)
  Sender: ASTELLAS
  Company Number: JP-ASTELLAS-2025-AER-042636

PATIENT
  Age: 8 Decade
  Sex: Female

DRUGS (1)
  1. PADCEV [Suspect]
     Active Substance: ENFORTUMAB VEDOTIN-EJFV
     Indication: Bladder cancer
     Route: 065
     Dates: start: 20240312, end: 20250610

REACTIONS (2)
  - Myelosuppression [Recovered/Resolved]
  - Lymphangiosis carcinomatosa [Fatal]

NARRATIVE: CASE EVENT DATE: 20240301
